FAERS Safety Report 8852888 (Version 5)
Quarter: 2013Q2

REPORT INFORMATION
  Report Type: Spontaneous
  Country: PR (occurrence: PR)
  Receive Date: 20121022
  Receipt Date: 20130419
  Transmission Date: 20140414
  Serious: Yes (Hospitalization, Other)
  Sender: FDA-Public Use
  Company Number: PR-ABBOTT-12P-131-0996403-00

PATIENT
  Age: 34 Year
  Sex: Male
  Weight: 69.01 kg

DRUGS (8)
  1. HUMIRA [Suspect]
     Indication: CROHN^S DISEASE
     Route: 058
     Dates: start: 201202, end: 20121015
  2. HUMIRA [Suspect]
     Route: 058
     Dates: start: 20121022, end: 201211
  3. HUMIRA [Suspect]
     Dates: start: 201302
  4. PREDNISONE [Concomitant]
     Indication: CROHN^S DISEASE
     Route: 048
  5. ASACOL [Concomitant]
     Indication: CROHN^S DISEASE
     Dosage: 2 TABLETS IN AM, 2 TABLETS IN PM
     Route: 048
  6. METFORMIN [Concomitant]
     Indication: DIABETES MELLITUS
     Route: 048
  7. UNKNOWN PILL [Concomitant]
     Indication: HYPERTENSION
     Route: 048
  8. ZANTAC [Concomitant]
     Indication: GASTRITIS
     Route: 048

REACTIONS (4)
  - Small intestinal obstruction [Recovered/Resolved]
  - Intestinal obstruction [Recovered/Resolved]
  - Abdominal pain upper [Recovered/Resolved]
  - Vomiting [Recovered/Resolved]
